FAERS Safety Report 16571686 (Version 7)
Quarter: 2020Q2

REPORT INFORMATION
  Report Type: Spontaneous
  Country: US (occurrence: US)
  Receive Date: 20190715
  Receipt Date: 20200506
  Transmission Date: 20200713
  Serious: Yes (Other)
  Sender: FDA-Public Use
  Company Number: US-PFIZER INC-2019213942

PATIENT
  Age: 46 Year
  Sex: Female
  Weight: 68.04 kg

DRUGS (9)
  1. LYRICA [Suspect]
     Active Substance: PREGABALIN
     Indication: SMALL FIBRE NEUROPATHY
  2. CLONAZEPAM. [Concomitant]
     Active Substance: CLONAZEPAM
     Indication: SLEEP DISORDER
     Dosage: 1 MG, AS NEEDED (1 MG TWICE A DAY AS NEEDED)
     Route: 048
     Dates: start: 2011
  3. LYRICA [Suspect]
     Active Substance: PREGABALIN
     Indication: POLYNEUROPATHY
     Dosage: UNK
     Dates: start: 20120917
  4. LYRICA [Suspect]
     Active Substance: PREGABALIN
     Indication: NEUROPATHY PERIPHERAL
     Dosage: 150 MG, 3X/DAY
     Route: 048
     Dates: start: 20111028
  5. LYRICA [Suspect]
     Active Substance: PREGABALIN
     Indication: AUTONOMIC NEUROPATHY
     Dosage: 150 MG, 1X/DAY
     Route: 048
     Dates: start: 201906
  6. LYRICA [Suspect]
     Active Substance: PREGABALIN
     Indication: FIBROMYALGIA
     Dosage: 150 MG, 2X/DAY (TAKING 2 INSTEAD OF 3)
     Route: 048
     Dates: start: 20190702
  7. CLONAZEPAM. [Concomitant]
     Active Substance: CLONAZEPAM
     Indication: NEURALGIA
  8. LYRICA [Suspect]
     Active Substance: PREGABALIN
     Indication: NEURALGIA
     Dosage: 150 MG, 3X/DAY
  9. LYRICA [Suspect]
     Active Substance: PREGABALIN
     Indication: NEUROPATHY PERIPHERAL

REACTIONS (5)
  - Seizure [Unknown]
  - Intentional product use issue [Unknown]
  - Feeling abnormal [Unknown]
  - Weight increased [Unknown]
  - Drug ineffective [Unknown]

NARRATIVE: CASE EVENT DATE: 201906
